FAERS Safety Report 4798798-6 (Version None)
Quarter: 2005Q4

REPORT INFORMATION
  Report Type: 
  Country: None (occurrence: None)
  Receive Date: 20051014
  Receipt Date: 20051004
  Transmission Date: 20060501
  Serious: Yes (Death)
  Sender: FDA-Public Use
  Company Number: AT-NOVOPROD-247643

PATIENT
  Sex: Female

DRUGS (1)
  1. NORDITROPIN SIMPLEXX [Suspect]
     Indication: GROWTH HORMONE DEFICIENCY
     Dosage: .24 MG/KG/WK

REACTIONS (4)
  - CARDIOPULMONARY FAILURE [None]
  - PULMONARY ARTERIAL PRESSURE INCREASED [None]
  - RESPIRATORY DISORDER [None]
  - SUDDEN DEATH [None]
